FAERS Safety Report 11103044 (Version 1)
Quarter: 2015Q2

REPORT INFORMATION
  Report Type: Spontaneous
  Country: US (occurrence: None)
  Receive Date: 20150508
  Receipt Date: 20150508
  Transmission Date: 20150821
  Serious: No
  Sender: FDA-Public Use
  Company Number: None

PATIENT
  Age: 62 Year
  Sex: Female

DRUGS (2)
  1. SUBOXONE [Concomitant]
     Active Substance: BUPRENORPHINE HYDROCHLORIDE\NALOXONE HYDROCHLORIDE
  2. BOTOX [Suspect]
     Active Substance: ONABOTULINUMTOXINA
     Indication: MIGRAINE
     Dosage: 200 UNITS/ EVERY 12 WEEKS
     Route: 030
     Dates: start: 20140815

REACTIONS (9)
  - Visual impairment [None]
  - Speech disorder [None]
  - Confusional state [None]
  - Dysphagia [None]
  - Bladder disorder [None]
  - Dyspnoea [None]
  - Headache [None]
  - Hypoaesthesia [None]
  - Neuropathy peripheral [None]

NARRATIVE: CASE EVENT DATE: 20150506
